FAERS Safety Report 18138844 (Version 1)
Quarter: 2020Q3

REPORT INFORMATION
  Report Type: Spontaneous
  Country: US (occurrence: US)
  Receive Date: 20200811
  Receipt Date: 20200811
  Transmission Date: 20201103
  Serious: Yes (Hospitalization)
  Sender: FDA-Public Use
  Company Number: None

PATIENT
  Sex: Male

DRUGS (20)
  1. HYDROCO/APAP [Concomitant]
     Active Substance: ACETAMINOPHEN\HYDROCODONE
  2. METOPROL SUC [Concomitant]
  3. ASPIRIN. [Concomitant]
     Active Substance: ASPIRIN
  4. CHLORHEX GLU [Concomitant]
  5. ISOSRB MONO [Concomitant]
  6. LEVOFLOXACIN. [Concomitant]
     Active Substance: LEVOFLOXACIN
  7. NAPROXEN. [Concomitant]
     Active Substance: NAPROXEN
  8. PRAVASTATIN. [Concomitant]
     Active Substance: PRAVASTATIN
  9. ASPIRIN. [Concomitant]
     Active Substance: ASPIRIN
  10. LISINOPRIL. [Concomitant]
     Active Substance: LISINOPRIL
  11. ONDANSETRON [Concomitant]
     Active Substance: ONDANSETRON
  12. AFINITOR [Suspect]
     Active Substance: EVEROLIMUS
     Indication: PROSTATE CANCER
     Route: 048
     Dates: start: 20200722
  13. AZITHROMYCIN ANHYDROUS. [Concomitant]
     Active Substance: AZITHROMYCIN ANHYDROUS
  14. MORPHINE SUL [Concomitant]
     Active Substance: MORPHINE SULFATE
  15. NARCAN [Concomitant]
     Active Substance: NALOXONE HYDROCHLORIDE
  16. ATORVASTATIN [Concomitant]
     Active Substance: ATORVASTATIN
  17. MIRALAX [Concomitant]
     Active Substance: POLYETHYLENE GLYCOL 3350
  18. NITROGLYCERN [Concomitant]
  19. LINZESS [Concomitant]
     Active Substance: LINACLOTIDE
  20. POLYETH GLYC [Concomitant]
     Active Substance: POLYETHYLENE GLYCOLS

REACTIONS (2)
  - Fluid retention [None]
  - Product dose omission issue [None]
